FAERS Safety Report 4963421-4 (Version None)
Quarter: 2006Q2

REPORT INFORMATION
  Report Type: 
  Country: None (occurrence: None)
  Receive Date: 20060405
  Receipt Date: 20051005
  Transmission Date: 20061013
  Serious: Yes (Life-Threatening, Hospitalization)
  Sender: FDA-Public Use
  Company Number: NO-SANOFI-SYNTHELABO-A01200507117

PATIENT
  Age: 34 Year
  Sex: Female

DRUGS (5)
  1. STILNOCT [Suspect]
     Indication: DRUG USE FOR UNKNOWN INDICATION
     Dosage: 7.5 MG/D OR 3 DOSES A DAY UNK
     Route: 065
  2. REMERON [Suspect]
     Indication: DRUG USE FOR UNKNOWN INDICATION
     Dosage: 30 MG/D OR 2 DOSES A DAY UNK
     Route: 048
  3. METHADONE HCL [Suspect]
     Indication: DRUG USE FOR UNKNOWN INDICATION
     Dosage: 100 MG
     Route: 065
  4. ZOPIKLON [Suspect]
     Indication: DRUG USE FOR UNKNOWN INDICATION
     Dosage: UNK
     Route: 065
  5. MODURETIC 5-50 [Suspect]
     Indication: DRUG USE FOR UNKNOWN INDICATION
     Dosage: 2.5 MG/25 MG 1 DF
     Route: 065

REACTIONS (1)
  - CARDIAC ARREST [None]
